FAERS Safety Report 24776808 (Version 1)
Quarter: 2024Q4

REPORT INFORMATION
  Report Type: Report from Study
  Country: DE (occurrence: DE)
  Receive Date: 20241226
  Receipt Date: 20241226
  Transmission Date: 20250114
  Serious: Yes (Other)
  Sender: UCB
  Company Number: DE-UCBSA-2024066828

PATIENT
  Sex: Male

DRUGS (1)
  1. BIMEKIZUMAB [Suspect]
     Active Substance: BIMEKIZUMAB
     Indication: Product used for unknown indication

REACTIONS (4)
  - Erysipelas [Recovered/Resolved]
  - Oral candidiasis [Recovered/Resolved]
  - Skin ulcer [Recovered/Resolved]
  - Tendonitis [Not Recovered/Not Resolved]

NARRATIVE: CASE EVENT DATE: 20241104
